FAERS Safety Report 24659244 (Version 1)
Quarter: 2024Q4

REPORT INFORMATION
  Report Type: Spontaneous
  Country: GB (occurrence: GB)
  Receive Date: 20241125
  Receipt Date: 20241125
  Transmission Date: 20250115
  Serious: Yes (Other)
  Sender: ELI LILLY AND COMPANY
  Company Number: None

PATIENT
  Age: 54 Year
  Sex: Female
  Weight: 83 kg

DRUGS (8)
  1. MOUNJARO [Suspect]
     Active Substance: TIRZEPATIDE
     Indication: Diabetes mellitus
     Dosage: (3.33 MG, UNKNOWN)
     Route: 065
     Dates: start: 20240603
  2. LIOTHYRONINE [Concomitant]
     Active Substance: LIOTHYRONINE
     Indication: Hypopituitarism
  3. LEVOTHYROXINE [Concomitant]
     Active Substance: LEVOTHYROXINE
     Indication: Hypopituitarism
  4. ESTRADIOL [Concomitant]
     Active Substance: ESTRADIOL
     Indication: Oophorectomy
  5. PROGESTERONE [Concomitant]
     Active Substance: PROGESTERONE
     Indication: Artificial menopause
  6. METFORMIN [Concomitant]
     Active Substance: METFORMIN HYDROCHLORIDE
     Indication: Diabetes mellitus
  7. ASPIRIN [Concomitant]
     Active Substance: ASPIRIN
     Indication: Cerebrovascular disorder
  8. TESTOSTERONE [Concomitant]
     Active Substance: TESTOSTERONE
     Indication: Artificial menopause

REACTIONS (2)
  - Agitation [Recovering/Resolving]
  - Sleep disorder due to general medical condition, insomnia type [Unknown]

NARRATIVE: CASE EVENT DATE: 20241109
